FAERS Safety Report 14221654 (Version 5)
Quarter: 2018Q2

REPORT INFORMATION
  Report Type: Report from Study
  Country: US (occurrence: US)
  Receive Date: 20171124
  Receipt Date: 20180420
  Transmission Date: 20180711
  Serious: Yes (Hospitalization)
  Sender: FDA-Public Use
  Company Number: US-ACTELION-A-US2017-160894

PATIENT
  Age: 59 Year
  Sex: Male
  Weight: 97.51 kg

DRUGS (5)
  1. UPTRAVI [Suspect]
     Active Substance: SELEXIPAG
     Indication: PULMONARY ARTERIAL HYPERTENSION
     Dosage: 200 MCG, BID
     Route: 048
  2. UPTRAVI [Suspect]
     Active Substance: SELEXIPAG
     Dosage: 400 MCG, BID
     Route: 048
     Dates: start: 201711
  3. UPTRAVI [Suspect]
     Active Substance: SELEXIPAG
     Dosage: UNK
     Route: 048
     Dates: end: 201711
  4. LETAIRIS [Concomitant]
     Active Substance: AMBRISENTAN
  5. UPTRAVI [Suspect]
     Active Substance: SELEXIPAG
     Dosage: 600 MCG, BID
     Route: 048

REACTIONS (7)
  - Gastrointestinal disorder [Unknown]
  - Vomiting [Unknown]
  - Chest discomfort [Unknown]
  - Transplant evaluation [Unknown]
  - Internal haemorrhage [Unknown]
  - Malaise [Unknown]
  - Headache [Unknown]
